FAERS Safety Report 4300695-7 (Version None)
Quarter: 2004Q1

REPORT INFORMATION
  Report Type: 
  Country: None (occurrence: None)
  Receive Date: 20040211
  Receipt Date: 20040129
  Transmission Date: 20041129
  Serious: Yes (Hospitalization)
  Sender: FDA-Public Use
  Company Number: 601054

PATIENT
  Age: 74 Year
  Sex: Female
  Weight: 85.2762 kg

DRUGS (9)
  1. POLYGAM S/D [Suspect]
     Indication: IMMUNODEFICIENCY
     Dosage: 30 GM;QM, INTRAVENOUS
     Route: 042
     Dates: start: 20031229, end: 20031229
  2. ALLOPURINOL [Concomitant]
  3. BEXTRA [Concomitant]
  4. PRILOSEC [Concomitant]
  5. FUROSEMIDE [Concomitant]
  6. ALBUTEROL [Concomitant]
  7. PREMARIN [Concomitant]
  8. FLONASE [Concomitant]
  9. FLOVENT [Concomitant]

REACTIONS (15)
  - BLOOD CREATINE PHOSPHOKINASE INCREASED [None]
  - BLOOD CREATINE PHOSPHOKINASE MB INCREASED [None]
  - BLOOD PRESSURE INCREASED [None]
  - CARDIAC ENZYMES INCREASED [None]
  - CHEST DISCOMFORT [None]
  - CORONARY ARTERY OCCLUSION [None]
  - DIZZINESS [None]
  - DRY THROAT [None]
  - DYSPNOEA [None]
  - HEADACHE [None]
  - HYPERTENSION [None]
  - MYOCARDIAL INFARCTION [None]
  - PAIN IN EXTREMITY [None]
  - STRESS SYMPTOMS [None]
  - TROPONIN I INCREASED [None]
